FAERS Safety Report 24197933 (Version 1)
Quarter: 2024Q3

REPORT INFORMATION
  Report Type: Spontaneous
  Country: FR (occurrence: FR)
  Receive Date: 20240812
  Receipt Date: 20240812
  Transmission Date: 20241016
  Serious: Yes (Other)
  Sender: NOVITIUM PHARMA
  Company Number: FR-NOVITIUMPHARMA-2024FRNVP01532

PATIENT
  Age: 55 Year
  Sex: Female

DRUGS (3)
  1. LIDOCAINE HYDROCHLORIDE [Suspect]
     Active Substance: LIDOCAINE HYDROCHLORIDE
     Indication: Anaesthesia
  2. EPINEPHRINE [Concomitant]
     Active Substance: EPINEPHRINE
     Indication: Anaesthesia
  3. SODIUM BICARBONATE [Concomitant]
     Active Substance: SODIUM BICARBONATE
     Indication: Anaesthesia

REACTIONS (1)
  - Skin necrosis [Unknown]
